FAERS Safety Report 4840575-1 (Version None)
Quarter: 2005Q4

REPORT INFORMATION
  Report Type: 
  Country: None (occurrence: None)
  Receive Date: 20051130
  Receipt Date: 20051024
  Transmission Date: 20060501
  Serious: No
  Sender: FDA-Public Use
  Company Number: US-BRISTOL-MYERS SQUIBB COMPANY-13155395

PATIENT
  Age: 68 Year
  Sex: Male
  Weight: 81 kg

DRUGS (5)
  1. ERBITUX [Suspect]
     Indication: COLORECTAL CANCER
  2. IRINOTECAN HCL [Concomitant]
     Indication: COLORECTAL CANCER
  3. COUMADIN [Concomitant]
  4. PRILOSEC [Concomitant]
  5. METOPROLOL [Concomitant]

REACTIONS (2)
  - BLEPHARITIS [None]
  - DERMATITIS ACNEIFORM [None]
